FAERS Safety Report 19738051 (Version 2)
Quarter: 2021Q3

REPORT INFORMATION
  Report Type: Spontaneous
  Country: CA (occurrence: CA)
  Receive Date: 20210824
  Receipt Date: 20210917
  Transmission Date: 20211014
  Serious: Yes (Death, Other)
  Sender: FDA-Public Use
  Company Number: CA-AMGEN-CANSP2021126886

PATIENT

DRUGS (1)
  1. CARFILZOMIB [Suspect]
     Active Substance: CARFILZOMIB
     Indication: PLASMA CELL MYELOMA
     Dosage: UNK
     Route: 065

REACTIONS (6)
  - Transplantation complication [Fatal]
  - Cardiac arrest [Fatal]
  - Death [Fatal]
  - Plasma cell myeloma [Unknown]
  - Therapy partial responder [Unknown]
  - Pneumonia [Fatal]
